FAERS Safety Report 18456573 (Version 1)
Quarter: 2020Q4

REPORT INFORMATION
  Report Type: Spontaneous
  Country: US (occurrence: US)
  Receive Date: 20201103
  Receipt Date: 20201103
  Transmission Date: 20210114
  Serious: Yes (Life-Threatening, Hospitalization)
  Sender: FDA-Public Use
  Company Number: US-STRIDES ARCOLAB LIMITED-2020SP013022

PATIENT
  Age: 54 Year
  Sex: Male

DRUGS (2)
  1. AMLODIPINE [Suspect]
     Active Substance: AMLODIPINE BESYLATE
     Indication: PRODUCT USED FOR UNKNOWN INDICATION
     Dosage: UNK
     Route: 065
  2. AMLODIPINE [Suspect]
     Active Substance: AMLODIPINE BESYLATE
     Dosage: 70 TABLETS
     Route: 065

REACTIONS (12)
  - Respiratory failure [Unknown]
  - Pancreatitis [Unknown]
  - Nausea [Unknown]
  - Hypoxia [Not Recovered/Not Resolved]
  - Intentional overdose [Unknown]
  - Hypotension [Recovered/Resolved]
  - Leukocytosis [Unknown]
  - Organising pneumonia [Unknown]
  - Rales [Unknown]
  - Lung disorder [Recovered/Resolved]
  - Chest pain [Unknown]
  - Tachycardia [Unknown]
